FAERS Safety Report 10735894 (Version 4)
Quarter: 2020Q3

REPORT INFORMATION
  Report Type: Other
  Country: US (occurrence: US)
  Receive Date: 20150126
  Receipt Date: 20200812
  Transmission Date: 20201102
  Serious: Yes (Other)
  Sender: FDA-Public Use
  Company Number: US-ROCHE-1525768

PATIENT
  Age: 10 Year
  Sex: Male
  Weight: 52.2 kg

DRUGS (8)
  1. NUTROPIN [Suspect]
     Active Substance: SOMATROPIN
  2. NUTROPIN [Suspect]
     Active Substance: SOMATROPIN
     Dosage: 20 MG/2 ML
     Route: 058
  3. NUTROPIN [Suspect]
     Active Substance: SOMATROPIN
  4. NUTROPIN [Suspect]
     Active Substance: SOMATROPIN
  5. NUTROPIN [Suspect]
     Active Substance: SOMATROPIN
     Route: 058
  6. NUTROPIN [Suspect]
     Active Substance: SOMATROPIN
     Indication: SHORT STATURE
     Route: 058
     Dates: end: 20141202
  7. NUTROPIN [Suspect]
     Active Substance: SOMATROPIN
     Dosage: NUSPIN 20, 0.2 MG DOSING INCREMENTS, 7 INJECTIONS PER WEEK, DISPENSED 1 MONTH SUPPLY AND REFILLED 4
     Route: 058
  8. NUTROPIN [Suspect]
     Active Substance: SOMATROPIN

REACTIONS (12)
  - Thyroxine free increased [Unknown]
  - Intraocular pressure increased [Unknown]
  - Headache [Recovered/Resolved]
  - Arthralgia [Unknown]
  - Neck pain [Unknown]
  - Intracranial pressure increased [Unknown]
  - Idiopathic intracranial hypertension [Unknown]
  - Myalgia [Unknown]
  - Hepatosplenomegaly [Unknown]
  - Anti-thyroid antibody positive [Unknown]
  - Idiopathic intracranial hypertension [Unknown]
  - Papilloedema [Unknown]

NARRATIVE: CASE EVENT DATE: 201411
